FAERS Safety Report 22128720 (Version 2)
Quarter: 2023Q1

REPORT INFORMATION
  Report Type: Spontaneous
  Country: US (occurrence: US)
  Receive Date: 20230323
  Receipt Date: 20230323
  Transmission Date: 20230418
  Serious: No
  Sender: FDA-Public Use
  Company Number: US-BIOGEN-2022BI01118213

PATIENT
  Sex: Female

DRUGS (10)
  1. PLEGRIDY [Suspect]
     Active Substance: PEGINTERFERON BETA-1A
     Indication: Multiple sclerosis
     Dosage: INJECT 125MCG SUBCUTANEOUSLY EVERY 14 DAYS
     Route: 050
  2. PLEGRIDY [Suspect]
     Active Substance: PEGINTERFERON BETA-1A
     Route: 050
     Dates: start: 20160603
  3. ASPIRIN [Concomitant]
     Active Substance: ASPIRIN
     Route: 050
  4. METOPROLOL TARTRATE [Concomitant]
     Active Substance: METOPROLOL TARTRATE
     Route: 050
  5. LEXAPRO [Concomitant]
     Active Substance: ESCITALOPRAM OXALATE
     Route: 050
  6. OXYBUTYNIN CHLORIDE [Concomitant]
     Active Substance: OXYBUTYNIN CHLORIDE
     Route: 050
  7. PLAVIX [Concomitant]
     Active Substance: CLOPIDOGREL BISULFATE
     Route: 050
  8. EZETIMIBE [Concomitant]
     Active Substance: EZETIMIBE
     Route: 050
  9. ESCITALOPRAM OXALATE [Concomitant]
     Active Substance: ESCITALOPRAM OXALATE
     Route: 050
  10. RANEXA (NOS) [Concomitant]
     Route: 050

REACTIONS (3)
  - Drug dose omission by device [Unknown]
  - Drug delivery system malfunction [Unknown]
  - Influenza like illness [Unknown]
